FAERS Safety Report 14134727 (Version 2)
Quarter: 2017Q4

REPORT INFORMATION
  Report Type: Report from Study
  Country: US (occurrence: US)
  Receive Date: 20171027
  Receipt Date: 20171127
  Transmission Date: 20180321
  Serious: Yes (Other)
  Sender: FDA-Public Use
  Company Number: US-BAYER-2017-160355

PATIENT
  Age: 64 Year
  Sex: Male

DRUGS (1)
  1. STIVARGA [Suspect]
     Active Substance: REGORAFENIB
     Indication: COLORECTAL CANCER METASTATIC
     Dosage: 40 MG DAILY, 3 WEEKS ON/1 WEEK OFF
     Route: 048
     Dates: start: 20170816

REACTIONS (14)
  - Pain of skin [None]
  - Polyp [None]
  - Rash papular [Not Recovered/Not Resolved]
  - Dry mouth [Recovered/Resolved]
  - Dry skin [Not Recovered/Not Resolved]
  - Pruritus [Not Recovered/Not Resolved]
  - Skin disorder [None]
  - Myalgia [None]
  - Metastases to lung [None]
  - Fatigue [Not Recovered/Not Resolved]
  - Exfoliative rash [None]
  - Off label use [None]
  - Skin cancer [None]
  - Metastases to liver [None]

NARRATIVE: CASE EVENT DATE: 2017
